FAERS Safety Report 5355927-3 (Version None)
Quarter: 2007Q2

REPORT INFORMATION
  Report Type: 
  Country: None (occurrence: None)
  Receive Date: 20070530
  Receipt Date: 20070223
  Transmission Date: 20071010
  Serious: Yes (Hospitalization)
  Sender: FDA-Public Use
  Company Number: US200702004980

PATIENT
  Age: 40 Year
  Sex: Female

DRUGS (3)
  1. ZYPREXA [Suspect]
  2. PAXIL [Concomitant]
  3. LOXAPINE [Concomitant]

REACTIONS (4)
  - AGITATION [None]
  - DYSKINESIA [None]
  - INTENTIONAL OVERDOSE [None]
  - THINKING ABNORMAL [None]
